FAERS Safety Report 5456844-0 (Version None)
Quarter: 2007Q3

REPORT INFORMATION
  Report Type: 
  Country: None (occurrence: None)
  Receive Date: 20070918
  Receipt Date: 20070430
  Transmission Date: 20080115
  Serious: Yes (Hospitalization)
  Sender: FDA-Public Use
  Company Number: US-ASTRAZENECA-2006UW26481

PATIENT
  Age: 649 Month
  Sex: Male
  Weight: 88.6 kg

DRUGS (4)
  1. SEROQUEL [Suspect]
     Indication: MENTAL DISORDER
     Route: 048
  2. RISPERDAL [Concomitant]
  3. ZYPREXA/SYMBYAX [Concomitant]
  4. UNSPECIFIED PSYCHIATRIC MEDICATION [Concomitant]

REACTIONS (2)
  - DIABETES MELLITUS [None]
  - PANCREATITIS [None]
